FAERS Safety Report 8179288-X (Version None)
Quarter: 2012Q1

REPORT INFORMATION
  Report Type: 
  Country: None (occurrence: None)
  Receive Date: 20120229
  Receipt Date: 20120229
  Transmission Date: 20120608
  Serious: Yes (Other)
  Sender: FDA-Public Use
  Company Number: None

PATIENT
  Age: 60 Year
  Sex: Female
  Weight: 85.2762 kg

DRUGS (1)
  1. ATORVASTATIN [Suspect]
     Indication: BLOOD CHOLESTEROL
     Dosage: 20 MG DAILY
     Dates: start: 20101201, end: 20120202

REACTIONS (10)
  - PRURITUS [None]
  - HEADACHE [None]
  - PYREXIA [None]
  - INSOMNIA [None]
  - CHILLS [None]
  - DIZZINESS [None]
  - HYPOAESTHESIA ORAL [None]
  - OROPHARYNGEAL BLISTERING [None]
  - CONSTIPATION [None]
  - NIGHTMARE [None]
